FAERS Safety Report 7830649-5 (Version None)
Quarter: 2011Q4

REPORT INFORMATION
  Report Type: 
  Country: None (occurrence: None)
  Receive Date: 20111021
  Receipt Date: 20111017
  Transmission Date: 20120403
  Serious: Yes (Other)
  Sender: FDA-Public Use
  Company Number: BR-ABBOTT-09P-020-0604646-00

PATIENT
  Sex: Female
  Weight: 80 kg

DRUGS (7)
  1. HUMIRA [Suspect]
     Indication: PSORIATIC ARTHROPATHY
     Route: 058
  2. MULTI-VITAMIN [Concomitant]
     Indication: VITAMIN SUPPLEMENTATION
     Route: 048
     Dates: start: 20090701
  3. ENDOFOLIN [Concomitant]
     Indication: PRODUCT USED FOR UNKNOWN INDICATION
     Dosage: FORM STRENTH: 5 MG
     Route: 048
     Dates: start: 20090301
  4. HUMIRA [Suspect]
     Route: 058
  5. VITAMIN B-COMPLEX, PLAIN [Concomitant]
     Indication: VITAMIN SUPPLEMENTATION
     Route: 048
     Dates: start: 20090701
  6. METHOTREXATE [Concomitant]
     Indication: PSORIATIC ARTHROPATHY
     Dosage: FORM STRENGTH: 50 MG
     Route: 058
     Dates: start: 20090301
  7. TIZANIDINE HCL [Concomitant]
     Indication: PAIN
     Route: 048
     Dates: start: 20090301

REACTIONS (3)
  - PSORIASIS [None]
  - WEIGHT INCREASED [None]
  - ARTHRALGIA [None]
